FAERS Safety Report 7205640-2 (Version None)
Quarter: 2010Q4

REPORT INFORMATION
  Report Type: 
  Country: None (occurrence: None)
  Receive Date: 20101231
  Receipt Date: 20101220
  Transmission Date: 20110411
  Serious: Yes (Hospitalization, Other)
  Sender: FDA-Public Use
  Company Number: US-ELI_LILLY_AND_COMPANY-US201006001796

PATIENT
  Sex: Female

DRUGS (1)
  1. FORTEO [Suspect]
     Indication: OSTEOPOROSIS
     Dosage: 20 UG, DAILY (1/D)

REACTIONS (7)
  - ASTHENIA [None]
  - COUGH [None]
  - DYSPNOEA [None]
  - INTRA-ABDOMINAL HAEMORRHAGE [None]
  - LABORATORY TEST ABNORMAL [None]
  - PNEUMONIA [None]
  - RALES [None]
